FAERS Safety Report 14307630 (Version 1)
Quarter: 2017Q4

REPORT INFORMATION
  Report Type: Spontaneous
  Country: DK (occurrence: DK)
  Receive Date: 20171220
  Receipt Date: 20171220
  Transmission Date: 20180321
  Serious: Yes (Life-Threatening, Hospitalization)
  Sender: FDA-Public Use
  Company Number: DK-CIPLA LTD.-2017DK24803

PATIENT

DRUGS (5)
  1. LATANOPROST/TIMOLOL ^PFIZER^ [Concomitant]
     Indication: GLAUCOMA
     Dosage: 1 DF, DOSIS: 1 DRABE DAGLIGT I BEGGE ?JNE, STYRKE: 50 MIKROG/ML+5 MG/ML
     Route: 050
  2. AMLODIPINE [Concomitant]
     Active Substance: AMLODIPINE BESYLATE
     Indication: HYPERTENSION
     Dosage: 5 MG, STYRKE: 10 MG
     Route: 048
  3. UNIKALK BASIC [Concomitant]
     Indication: MINERAL SUPPLEMENTATION
     Dosage: 1 DF, STYRKE: 400 MG CALCIUM + 38 ?G D3
     Route: 048
     Dates: start: 20150213
  4. LETROZOLE. [Concomitant]
     Active Substance: LETROZOLE
     Indication: BREAST CANCER FEMALE
     Dosage: 2.5 MG, STYRKE: 2,5 MG
     Route: 048
     Dates: start: 20150213
  5. ZOLEDRONIC ACID [Suspect]
     Active Substance: ZOLEDRONIC ACID
     Indication: OSTEOPOROSIS
     Dosage: 1 DF, STYRKE: 4 MG/5 ML
     Route: 042
     Dates: start: 20160210, end: 201701

REACTIONS (2)
  - Jaw operation [Recovered/Resolved]
  - Osteonecrosis of jaw [Not Recovered/Not Resolved]

NARRATIVE: CASE EVENT DATE: 201710
